FAERS Safety Report 4986778-7 (Version None)
Quarter: 2006Q2

REPORT INFORMATION
  Report Type: 
  Country: None (occurrence: None)
  Receive Date: 20060428
  Receipt Date: 20050602
  Transmission Date: 20061013
  Serious: Yes (Hospitalization, Disabling)
  Sender: FDA-Public Use
  Company Number: US-MERCK-0506USA00718

PATIENT
  Age: 32 Year
  Sex: Female
  Weight: 77 kg

DRUGS (9)
  1. VIOXX [Suspect]
     Indication: MONARTHRITIS
     Route: 048
     Dates: start: 20010615, end: 20040826
  2. PLAQUENIL [Concomitant]
     Route: 065
  3. TRAZODONE HYDROCHLORIDE [Concomitant]
     Route: 065
  4. COUMADIN [Concomitant]
     Route: 065
  5. ULTRAM [Concomitant]
     Route: 065
  6. PROVENTIL [Concomitant]
     Route: 065
  7. FLOVENT [Concomitant]
     Route: 065
  8. SINGULAIR [Concomitant]
     Route: 065
  9. METHOTREXATE [Concomitant]
     Route: 065

REACTIONS (23)
  - AMENORRHOEA [None]
  - AMNESIA [None]
  - APPENDICECTOMY [None]
  - ARRHYTHMIA [None]
  - CEREBRAL DISORDER [None]
  - CERVICOBRACHIAL SYNDROME [None]
  - CHEST PAIN [None]
  - CHOLECYSTITIS [None]
  - CORNEAL ABRASION [None]
  - DEEP VEIN THROMBOSIS [None]
  - DYSFUNCTIONAL UTERINE BLEEDING [None]
  - FACIAL PALSY [None]
  - GASTROINTESTINAL DISORDER [None]
  - MENISCUS LESION [None]
  - MIGRAINE [None]
  - PAIN IN EXTREMITY [None]
  - PATELLOFEMORAL PAIN SYNDROME [None]
  - PLEURITIC PAIN [None]
  - PULMONARY EMBOLISM [None]
  - SYNOVIAL CYST [None]
  - UPPER RESPIRATORY TRACT INFECTION [None]
  - VAGINAL ULCERATION [None]
  - VASCULITIS [None]
